FAERS Safety Report 15903283 (Version 1)
Quarter: 2019Q1

REPORT INFORMATION
  Report Type: Spontaneous
  Country: KZ (occurrence: KZ)
  Receive Date: 20190202
  Receipt Date: 20190202
  Transmission Date: 20190417
  Serious: Yes (Life-Threatening, Hospitalization)
  Sender: FDA-Public Use
  Company Number: KZ-ARBOR PHARMACEUTICALS, LLC-KZ-2019ARB000073

PATIENT
  Sex: Female

DRUGS (1)
  1. EDARBI [Suspect]
     Active Substance: AZILSARTAN KAMEDOXOMIL
     Indication: HYPERTENSION
     Dosage: 4025 MG, UNK
     Route: 048

REACTIONS (2)
  - Blood pressure decreased [Recovering/Resolving]
  - Product dispensing error [Unknown]
